FAERS Safety Report 4993372-0 (Version None)
Quarter: 2006Q2

REPORT INFORMATION
  Report Type: 
  Country: None (occurrence: None)
  Receive Date: 20060503
  Receipt Date: 20060503
  Transmission Date: 20061013
  Serious: No
  Sender: FDA-Public Use
  Company Number: None

PATIENT
  Age: 77 Year
  Sex: Female
  Weight: 94.3482 kg

DRUGS (1)
  1. OPTIRAY 350 [Suspect]
     Indication: SCAN WITH CONTRAST

REACTIONS (5)
  - CARDIAC FAILURE CONGESTIVE [None]
  - NAUSEA [None]
  - PNEUMONIA [None]
  - RENAL FAILURE ACUTE [None]
  - TINNITUS [None]
